FAERS Safety Report 11352425 (Version 1)
Quarter: 2015Q3

REPORT INFORMATION
  Report Type: Spontaneous
  Country: US (occurrence: US)
  Receive Date: 20150807
  Receipt Date: 20150807
  Transmission Date: 20151125
  Serious: No
  Sender: FDA-Public Use
  Company Number: US-JNJFOC-20150115054

PATIENT
  Age: 35 Year
  Sex: Male
  Weight: 104.78 kg

DRUGS (7)
  1. MULTIVITAMINS [Concomitant]
     Active Substance: VITAMINS
     Indication: ROUTINE HEALTH MAINTENANCE
     Dosage: 50% OF DAILY ALLOWAN, 17 YEARS
     Route: 065
  2. MENS ROGAINE EXTRA STRENGTH [Suspect]
     Active Substance: MINOXIDIL
     Indication: ALOPECIA
     Dosage: 1/2 CAPFUL
     Route: 061
  3. PROTEIN SUPPLEMENT [Concomitant]
     Active Substance: PROTEIN
     Indication: MUSCLE BUILDING THERAPY
     Dosage: 21 YEARS
     Route: 065
  4. KRILL OIL [Concomitant]
     Active Substance: DIETARY SUPPLEMENT
     Indication: CARDIAC DISORDER
     Dosage: 8-9 YEARS
     Route: 065
  5. MENS ROGAINE EXTRA STRENGTH [Suspect]
     Active Substance: MINOXIDIL
     Route: 061
  6. FISH OIL [Concomitant]
     Active Substance: FISH OIL
     Indication: CARDIAC DISORDER
     Dosage: 1000 ML, 1 PILL PER DAY, 17 YEARS
     Route: 065
  7. VITAMIN D [Concomitant]
     Active Substance: CHOLECALCIFEROL
     Indication: ROUTINE HEALTH MAINTENANCE
     Dosage: 17 YEARS, 1/2 OF DAILY ALLOWANCE
     Route: 065

REACTIONS (4)
  - Urine odour abnormal [Not Recovered/Not Resolved]
  - Erectile dysfunction [Unknown]
  - Fatigue [Unknown]
  - Libido decreased [Unknown]
